FAERS Safety Report 11256014 (Version 2)
Quarter: 2016Q1

REPORT INFORMATION
  Report Type: Report from Study
  Country: DE (occurrence: DE)
  Receive Date: 20150709
  Receipt Date: 20160314
  Transmission Date: 20160525
  Serious: Yes (Hospitalization)
  Sender: FDA-Public Use
  Company Number: DE-TAKEDA-2015TEU005457

PATIENT
  Age: 41 Year
  Sex: Female
  Weight: 74 kg

DRUGS (5)
  1. PREDNISOLONE. [Suspect]
     Active Substance: PREDNISOLONE
     Indication: CROHN^S DISEASE
     Dosage: 15 MG, QD
     Route: 048
     Dates: start: 20150507
  2. AMLODIPINE [Concomitant]
     Active Substance: AMLODIPINE BESYLATE
     Indication: HYPERTONIA
     Dosage: 10 MG, QD
     Route: 048
     Dates: start: 20141110
  3. NOVAMINSULFON [Concomitant]
     Active Substance: METAMIZOLE
     Indication: MUSCULOSKELETAL PAIN
     Dosage: 500 MG, UNK
     Route: 048
     Dates: start: 20150428
  4. VEDOLIZUMAB [Suspect]
     Active Substance: VEDOLIZUMAB
     Indication: CROHN^S DISEASE
     Dosage: 300 MG, UNK
     Route: 042
     Dates: start: 20150302
  5. RAMIPRIL. [Concomitant]
     Active Substance: RAMIPRIL
     Indication: HYPERTONIA
     Dosage: 10 MG, QD
     Route: 048
     Dates: start: 20141110

REACTIONS (1)
  - Abscess neck [Recovered/Resolved]

NARRATIVE: CASE EVENT DATE: 20150508
